FAERS Safety Report 11127979 (Version 1)
Quarter: 2015Q2

REPORT INFORMATION
  Report Type: Spontaneous
  Country: US (occurrence: None)
  Receive Date: 20150520
  Receipt Date: 20150520
  Transmission Date: 20150821
  Serious: No
  Sender: FDA-Public Use
  Company Number: None

PATIENT
  Age: 19 Year
  Sex: Female
  Weight: 53.6 kg

DRUGS (5)
  1. DESMOPRESSION ACETATE [Suspect]
     Active Substance: DESMOPRESSIN ACETATE
     Indication: ECCHYMOSIS
     Route: 042
     Dates: start: 20141222
  2. PROPOFOL. [Concomitant]
     Active Substance: PROPOFOL
  3. DESMOPRESSION ACETATE [Suspect]
     Active Substance: DESMOPRESSIN ACETATE
     Indication: POST PROCEDURAL COMPLICATION
     Route: 042
     Dates: start: 20141222
  4. GENERAL ANAESTHESIA [Concomitant]
  5. ONDANSETRON [Concomitant]
     Active Substance: ONDANSETRON

REACTIONS (1)
  - Epistaxis [None]

NARRATIVE: CASE EVENT DATE: 20150103
